FAERS Safety Report 9210341 (Version 1)
Quarter: 2013Q2

REPORT INFORMATION
  Report Type: Spontaneous
  Country: US (occurrence: US)
  Receive Date: 20130404
  Receipt Date: 20130404
  Transmission Date: 20140414
  Serious: No
  Sender: FDA-Public Use
  Company Number: PHEH2013US007677

PATIENT
  Sex: Male

DRUGS (5)
  1. TASIGNA [Suspect]
     Indication: LEUKAEMIA
     Dosage: 150 MG, BID
     Dates: start: 20120908
  2. FLUOXETINE [Concomitant]
  3. DILTIAZEM [Concomitant]
  4. MULTAQ [Concomitant]
  5. HYTRIN [Concomitant]

REACTIONS (1)
  - Fatigue [Unknown]
